FAERS Safety Report 6717375-0 (Version None)
Quarter: 2010Q2

REPORT INFORMATION
  Report Type: 
  Country: None (occurrence: None)
  Receive Date: 20100510
  Receipt Date: 20100429
  Transmission Date: 20101027
  Serious: Yes (Hospitalization, Other)
  Sender: FDA-Public Use
  Company Number: US-AMGEN-US408000

PATIENT
  Sex: Female
  Weight: 78.1 kg

DRUGS (11)
  1. ENBREL [Suspect]
     Indication: RHEUMATOID ARTHRITIS
     Route: 058
     Dates: start: 20080520, end: 20100413
  2. COUMADIN [Concomitant]
     Dates: start: 20081021
  3. NEXIUM [Concomitant]
     Dates: start: 20080430
  4. EXFORGE [Concomitant]
     Dates: start: 20081104
  5. XYZAL [Concomitant]
     Dates: start: 20081119
  6. SYNTHROID [Concomitant]
     Dates: start: 19970818
  7. DEMADEX [Concomitant]
     Dates: start: 20080724
  8. DARVOCET-N 100 [Concomitant]
  9. LEXAPRO [Concomitant]
     Dates: start: 20090602
  10. XANAX [Concomitant]
  11. TRILIPIX [Concomitant]
     Dates: start: 20090805

REACTIONS (12)
  - CHOLANGITIS [None]
  - GASTROENTERITIS [None]
  - GROIN ABSCESS [None]
  - LYMPHOMA [None]
  - PLEURAL EFFUSION [None]
  - PNEUMONIA [None]
  - PULMONARY EMBOLISM [None]
  - PULMONARY MASS [None]
  - RENAL CYST [None]
  - RESPIRATORY DISTRESS [None]
  - TRIGEMINAL NEURALGIA [None]
  - VENOUS THROMBOSIS [None]
